FAERS Safety Report 10033473 (Version 1)
Quarter: 2014Q1

REPORT INFORMATION
  Report Type: Spontaneous
  Country: GR (occurrence: GR)
  Receive Date: 20140325
  Receipt Date: 20140325
  Transmission Date: 20141002
  Serious: Yes (Death)
  Sender: FDA-Public Use
  Company Number: GR-BIOGENIDEC-2014BI025425

PATIENT
  Age: 67 Year
  Sex: Male
  Weight: 68 kg

DRUGS (2)
  1. AVONEX [Suspect]
     Indication: MULTIPLE SCLEROSIS
     Route: 030
     Dates: start: 20120215, end: 20130815
  2. DEPON (PARACETAMOL) [Concomitant]
     Indication: PROPHYLAXIS

REACTIONS (1)
  - Myocardial infarction [Fatal]
